FAERS Safety Report 21400811 (Version 8)
Quarter: 2023Q4

REPORT INFORMATION
  Report Type: Report from Study
  Country: AR (occurrence: AR)
  Receive Date: 20221003
  Receipt Date: 20231012
  Transmission Date: 20240110
  Serious: Yes (Hospitalization, Other)
  Sender: FDA-Public Use
  Company Number: AR-NOVARTISPH-NVSC2022AR221194

PATIENT
  Age: 47 Year
  Sex: Female

DRUGS (2)
  1. TAFINLAR [Suspect]
     Active Substance: DABRAFENIB MESYLATE
     Indication: Metastatic malignant melanoma
     Dosage: 300 MG, QD
     Route: 048
     Dates: start: 20220824
  2. MEKINIST [Suspect]
     Active Substance: TRAMETINIB DIMETHYL SULFOXIDE
     Indication: Metastatic malignant melanoma
     Dosage: 2 MG, QD
     Route: 048
     Dates: start: 20220824

REACTIONS (16)
  - Malaise [Unknown]
  - Hypotension [Unknown]
  - Feeding disorder [Unknown]
  - Syncope [Unknown]
  - Vomiting [Unknown]
  - Nodule [Unknown]
  - Pyrexia [Unknown]
  - Neoplasm [Unknown]
  - Gait inability [Unknown]
  - Nasopharyngitis [Unknown]
  - Peripheral swelling [Unknown]
  - Weight increased [Unknown]
  - Hypersensitivity [Recovered/Resolved]
  - Inappropriate schedule of product administration [Unknown]
  - Urinary tract infection [Unknown]
  - Toothache [Unknown]

NARRATIVE: CASE EVENT DATE: 20220801
